FAERS Safety Report 5659446-6 (Version None)
Quarter: 2008Q1

REPORT INFORMATION
  Report Type: 
  Country: None (occurrence: None)
  Receive Date: 20080307
  Receipt Date: 20080307
  Transmission Date: 20080703
  Serious: No
  Sender: FDA-Public Use
  Company Number: None

PATIENT
  Age: 60 Year
  Sex: Female
  Weight: 72.5755 kg

DRUGS (4)
  1. MUCINEX [Suspect]
     Indication: CHRONIC OBSTRUCTIVE PULMONARY DISEASE
     Dosage: ONCE QD QD PO
     Route: 048
  2. MUCINEX [Suspect]
     Indication: COUGH
     Dosage: ONCE QD QD PO
     Route: 048
  3. MUCINEX [Suspect]
     Indication: HYPERSENSITIVITY
     Dosage: ONCE QD QD PO
     Route: 048
  4. MUCINEX [Suspect]
     Indication: POSTNASAL DRIP
     Dosage: ONCE QD QD PO
     Route: 048

REACTIONS (1)
  - DRUG EFFECT DECREASED [None]
